FAERS Safety Report 10515669 (Version 2)
Quarter: 2015Q1

REPORT INFORMATION
  Report Type: Spontaneous
  Country: US (occurrence: US)
  Receive Date: 20141014
  Receipt Date: 20150211
  Transmission Date: 20150720
  Serious: Yes (Hospitalization)
  Sender: FDA-Public Use
  Company Number: US-JNJFOC-20141008527

PATIENT
  Age: 63 Year
  Sex: Male
  Weight: 83.92 kg

DRUGS (1)
  1. NUCYNTA ER [Suspect]
     Active Substance: TAPENTADOL HYDROCHLORIDE
     Indication: PRODUCT USED FOR UNKNOWN INDICATION
     Route: 048
     Dates: start: 2013, end: 20140808

REACTIONS (1)
  - Drug detoxification [Unknown]

NARRATIVE: CASE EVENT DATE: 20140505
